FAERS Safety Report 15739170 (Version 1)
Quarter: 2018Q4

REPORT INFORMATION
  Report Type: Spontaneous
  Country: CA (occurrence: CA)
  Receive Date: 20181219
  Receipt Date: 20181219
  Transmission Date: 20190205
  Serious: Yes (Life-Threatening, Hospitalization)
  Sender: FDA-Public Use
  Company Number: CA-BAYER-2018-238579

PATIENT
  Age: 59 Year
  Sex: Female

DRUGS (1)
  1. GADOVIST [Suspect]
     Active Substance: GADOBUTROL
     Indication: NUCLEAR MAGNETIC RESONANCE IMAGING
     Dosage: 10.0 ML, ONCE
     Route: 040

REACTIONS (5)
  - Resuscitation [Unknown]
  - Chest pain [Unknown]
  - Dyspnoea [Unknown]
  - Rash macular [Unknown]
  - Pruritus [Unknown]
